FAERS Safety Report 5607141-1 (Version None)
Quarter: 2008Q1

REPORT INFORMATION
  Report Type: 
  Country: None (occurrence: None)
  Receive Date: 20080111
  Receipt Date: 20071109
  Transmission Date: 20080703
  Serious: Yes (Other)
  Sender: FDA-Public Use
  Company Number: HQWYE398005JAN05

PATIENT
  Age: 63 Year
  Sex: Female
  Weight: 97.61 kg

DRUGS (1)
  1. PREMPRO [Suspect]
     Indication: HORMONE REPLACEMENT THERAPY
     Dosage: ORAL
     Route: 048
     Dates: start: 19950101

REACTIONS (2)
  - BENIGN OVARIAN TUMOUR [None]
  - BREAST CANCER [None]
